FAERS Safety Report 9519112 (Version 1)
Quarter: 2013Q3

REPORT INFORMATION
  Report Type: Spontaneous
  Country: SN (occurrence: SN)
  Receive Date: 20130912
  Receipt Date: 20130912
  Transmission Date: 20140515
  Serious: Yes (Life-Threatening)
  Sender: FDA-Public Use
  Company Number: PHHY2013SN100729

PATIENT
  Sex: 0

DRUGS (2)
  1. GLIVEC [Suspect]
     Indication: CHRONIC MYELOID LEUKAEMIA
     Dosage: UNK
     Route: 048
  2. SPRYCEL [Suspect]
     Dosage: UNK

REACTIONS (3)
  - Nervous system disorder [Unknown]
  - Angiopathy [Unknown]
  - Feeling abnormal [Unknown]
